FAERS Safety Report 8348494-3 (Version None)
Quarter: 2012Q2

REPORT INFORMATION
  Report Type: 
  Country: None (occurrence: None)
  Receive Date: 20120509
  Receipt Date: 20120503
  Transmission Date: 20120825
  Serious: Yes (Hospitalization, Disabling)
  Sender: FDA-Public Use
  Company Number: US-MERCK-1106USA03365

PATIENT
  Age: 57 Year
  Sex: Female
  Weight: 73 kg

DRUGS (11)
  1. FOSAMAX [Suspect]
     Indication: OSTEOPENIA
     Route: 048
     Dates: start: 20050401, end: 20080501
  2. ACTONEL [Suspect]
     Route: 048
     Dates: start: 20020301, end: 20030301
  3. ALENDRONATE SODIUM [Suspect]
     Indication: OSTEOPENIA
     Route: 048
     Dates: start: 20080501, end: 20100617
  4. ACTONEL [Suspect]
     Route: 048
     Dates: start: 20011201, end: 20020301
  5. ACTONEL [Suspect]
     Route: 048
     Dates: start: 20030301, end: 20040301
  6. CALCIUM (UNSPECIFIED) [Concomitant]
     Route: 065
     Dates: start: 19960101
  7. ACTONEL [Suspect]
     Route: 048
     Dates: start: 20040301, end: 20050401
  8. MULTI-VITAMINS [Concomitant]
     Route: 065
     Dates: start: 20070101
  9. FOSAMAX [Suspect]
     Indication: OSTEOPOROSIS
     Route: 048
     Dates: start: 20050401, end: 20080501
  10. ACTONEL [Suspect]
     Indication: OSTEOPENIA
     Route: 048
     Dates: start: 20010401, end: 20011201
  11. FEMHRT [Concomitant]
     Indication: HORMONE REPLACEMENT THERAPY
     Route: 048
     Dates: start: 20030101

REACTIONS (36)
  - BACK PAIN [None]
  - NECK PAIN [None]
  - VAGINAL INFECTION [None]
  - ASTHMA [None]
  - JOINT SWELLING [None]
  - ROAD TRAFFIC ACCIDENT [None]
  - FUNGAL INFECTION [None]
  - WOUND DEHISCENCE [None]
  - ANXIETY [None]
  - SPINAL CORD DISORDER [None]
  - FLUID RETENTION [None]
  - CELLULITIS [None]
  - GOITRE [None]
  - MYELOPATHY [None]
  - COUGH [None]
  - FALL [None]
  - FEMUR FRACTURE [None]
  - GAIT DISTURBANCE [None]
  - HAEMORRHOIDS [None]
  - STRESS URINARY INCONTINENCE [None]
  - ATYPICAL FEMUR FRACTURE [None]
  - COLONIC POLYP [None]
  - SEASONAL ALLERGY [None]
  - ALOPECIA [None]
  - DYSPAREUNIA [None]
  - CARPAL TUNNEL SYNDROME [None]
  - CYST [None]
  - TENDONITIS [None]
  - SINUS DISORDER [None]
  - LOW TURNOVER OSTEOPATHY [None]
  - MUSCLE SPASMS [None]
  - INTERVERTEBRAL DISC PROTRUSION [None]
  - ATROPHIC VULVOVAGINITIS [None]
  - TOOTH DISORDER [None]
  - BENIGN NEOPLASM OF SPINAL CORD [None]
  - BLOOD CHOLESTEROL INCREASED [None]
